FAERS Safety Report 24385953 (Version 3)
Quarter: 2025Q4

REPORT INFORMATION
  Report Type: Spontaneous
  Country: US (occurrence: US)
  Receive Date: 20241001
  Receipt Date: 20251201
  Transmission Date: 20260119
  Serious: No
  Sender: NOVARTIS
  Company Number: US-002147023-NVSC2024US194418

PATIENT
  Sex: Female
  Weight: 47 kg

DRUGS (1)
  1. FABHALTA [Suspect]
     Active Substance: IPTACOPAN HYDROCHLORIDE
     Indication: C3 glomerulopathy
     Dosage: 200 MG, BID
     Route: 048
     Dates: start: 202408

REACTIONS (1)
  - Diarrhoea [Unknown]
